FAERS Safety Report 8444240-3 (Version None)
Quarter: 2012Q2

REPORT INFORMATION
  Report Type: 
  Country: None (occurrence: None)
  Receive Date: 20120618
  Receipt Date: 20120605
  Transmission Date: 20120825
  Serious: Yes (Other)
  Sender: FDA-Public Use
  Company Number: US-SANOFI-AVENTIS-2012SA040534

PATIENT

DRUGS (2)
  1. ASPIRIN [Suspect]
  2. PLAVIX [Suspect]
     Indication: STENT PLACEMENT

REACTIONS (1)
  - IDIOPATHIC THROMBOCYTOPENIC PURPURA [None]
